FAERS Safety Report 5130498-5 (Version None)
Quarter: 2006Q4

REPORT INFORMATION
  Report Type: 
  Country: None (occurrence: None)
  Receive Date: 20061019
  Receipt Date: 20060920
  Transmission Date: 20070319
  Serious: Yes (Death, Life-Threatening)
  Sender: FDA-Public Use
  Company Number: JP-JPN-A200603789

PATIENT
  Age: 13 Year
  Sex: Male

DRUGS (4)
  1. FLOLAN [Suspect]
     Indication: PULMONARY HYPERTENSION
     Route: 042
     Dates: start: 20000904
  2. SILDENAFIL CITRATE [Suspect]
     Indication: PULMONARY HYPERTENSION
     Dosage: 60MG FOUR TIMES PER DAY
     Route: 048
     Dates: start: 20041022, end: 20050408
  3. BUFFERIN [Suspect]
     Dosage: 81MG PER DAY
     Route: 048
     Dates: start: 20000717, end: 20010830
  4. DIOVAN [Concomitant]
     Route: 048

REACTIONS (5)
  - ATELECTASIS [None]
  - HAEMOPTYSIS [None]
  - PULMONARY ARTERY ANEURYSM [None]
  - PULMONARY HAEMORRHAGE [None]
  - SYNCOPE [None]
